FAERS Safety Report 20096664 (Version 1)
Quarter: 2021Q4

REPORT INFORMATION
  Report Type: Spontaneous
  Country: US (occurrence: None)
  Receive Date: 20211120
  Receipt Date: 20211120
  Transmission Date: 20220303
  Serious: No
  Sender: FDA-Public Use
  Company Number: None

PATIENT
  Age: 48 Year
  Sex: Female
  Weight: 63 kg

DRUGS (2)
  1. HIZENTRA [Suspect]
     Active Substance: HUMAN IMMUNOGLOBULIN G
     Indication: Blood immunoglobulin M decreased
     Dosage: OTHER FREQUENCY : WEEKLY;?
     Route: 058
     Dates: start: 20211116, end: 20211116
  2. HIZENTRA [Suspect]
     Active Substance: HUMAN IMMUNOGLOBULIN G
     Dosage: OTHER FREQUENCY : WEEKLY;?
     Route: 058

REACTIONS (2)
  - Infusion related reaction [None]
  - Infusion site pain [None]

NARRATIVE: CASE EVENT DATE: 20211119
